FAERS Safety Report 19378468 (Version 2)
Quarter: 2021Q2

REPORT INFORMATION
  Report Type: Report from Study
  Country: ES (occurrence: ES)
  Receive Date: 20210606
  Receipt Date: 20210624
  Transmission Date: 20210717
  Serious: Yes (Hospitalization, Other)
  Sender: FDA-Public Use
  Company Number: ES-JNJFOC-20210553349

PATIENT
  Sex: Female

DRUGS (22)
  1. PREDNISONE. [Concomitant]
     Active Substance: PREDNISONE
     Indication: SCLERODERMA
     Route: 048
     Dates: start: 20210302
  2. PREGABALIN. [Concomitant]
     Active Substance: PREGABALIN
     Indication: ANXIETY
     Route: 048
     Dates: start: 20171121
  3. SPIRONOLACTONE. [Concomitant]
     Active Substance: SPIRONOLACTONE
     Indication: PULMONARY ARTERIAL HYPERTENSION
     Route: 048
     Dates: start: 20140715
  4. REMODULIN [Concomitant]
     Active Substance: TREPROSTINIL
     Indication: PULMONARY HYPERTENSION
     Dosage: UP TITRATION
     Route: 042
     Dates: start: 20210323, end: 20210328
  5. BROMAZEPAM [Concomitant]
     Active Substance: BROMAZEPAM
     Indication: ANXIETY
     Route: 048
     Dates: start: 20170821
  6. FUROSEMIDE. [Concomitant]
     Active Substance: FUROSEMIDE
     Indication: PULMONARY ARTERIAL HYPERTENSION
     Route: 048
     Dates: start: 20140715
  7. EPOPROSTENOL SODIUM. [Suspect]
     Active Substance: EPOPROSTENOL SODIUM
     Indication: PULMONARY HYPERTENSION
     Route: 042
     Dates: start: 20210129, end: 20210131
  8. ESOMEPRAZOLE. [Concomitant]
     Active Substance: ESOMEPRAZOLE MAGNESIUM
     Indication: CHRONIC GASTRITIS
     Route: 048
     Dates: start: 20160111
  9. LEVOFLOXACIN. [Concomitant]
     Active Substance: LEVOFLOXACIN
     Indication: VASCULAR DEVICE INFECTION
     Route: 042
     Dates: start: 20210212, end: 20210222
  10. IRON [Concomitant]
     Active Substance: IRON
     Indication: IRON DEFICIENCY
     Route: 048
     Dates: start: 20180124
  11. REMODULIN [Concomitant]
     Active Substance: TREPROSTINIL
     Route: 042
     Dates: start: 20210329
  12. MEROPENEM. [Concomitant]
     Active Substance: MEROPENEM
     Indication: PYREXIA
     Route: 048
     Dates: start: 20210224, end: 20210308
  13. MEBEVERINA [Concomitant]
     Indication: CHRONIC GASTRITIS
     Route: 048
     Dates: start: 20110803
  14. BOSENTAN. [Concomitant]
     Active Substance: BOSENTAN
     Indication: PULMONARY HYPERTENSION
     Route: 048
     Dates: start: 20140926, end: 20210219
  15. EPOPROSTENOL SODIUM. [Suspect]
     Active Substance: EPOPROSTENOL SODIUM
     Dosage: UP TITRATION
     Route: 042
     Dates: start: 20210202, end: 20210204
  16. EPOPROSTENOL SODIUM. [Suspect]
     Active Substance: EPOPROSTENOL SODIUM
     Route: 042
     Dates: start: 20210205, end: 20210219
  17. EPOPROSTENOL SODIUM. [Suspect]
     Active Substance: EPOPROSTENOL SODIUM
     Dosage: UP TITRATION
     Route: 042
     Dates: start: 20210220, end: 20210323
  18. LEVOTHYROXINE. [Concomitant]
     Active Substance: LEVOTHYROXINE
     Indication: HYPOTHYROIDISM
     Route: 048
     Dates: start: 20150209
  19. REMODULIN [Concomitant]
     Active Substance: TREPROSTINIL
     Route: 042
     Dates: start: 20210329
  20. RITUXIMAB. [Concomitant]
     Active Substance: RITUXIMAB
     Indication: SCLERODERMA
     Route: 042
     Dates: start: 20210331, end: 20210401
  21. DESVENLAFAXINA [DESVENLAFAXINE] [Concomitant]
     Indication: ANXIETY
     Route: 048
     Dates: start: 20170821
  22. ADCIRCA [Concomitant]
     Active Substance: TADALAFIL
     Indication: PULMONARY HYPERTENSION
     Route: 048
     Dates: start: 20140807

REACTIONS (5)
  - Acute respiratory failure [Recovered/Resolved]
  - Pneumonia [Recovered/Resolved]
  - Upper gastrointestinal haemorrhage [Recovered/Resolved]
  - Post procedural fever [Recovered/Resolved]
  - Idiopathic interstitial pneumonia [Recovered/Resolved]

NARRATIVE: CASE EVENT DATE: 202101
